FAERS Safety Report 16790486 (Version 3)
Quarter: 2019Q4

REPORT INFORMATION
  Report Type: Spontaneous
  Country: US (occurrence: US)
  Receive Date: 20190910
  Receipt Date: 20191010
  Transmission Date: 20200122
  Serious: No
  Sender: FDA-Public Use
  Company Number: US-PFIZER INC-2019388065

PATIENT
  Age: 71 Year
  Sex: Female

DRUGS (1)
  1. PREMPRO [Suspect]
     Active Substance: ESTROGENS, CONJUGATED\MEDROXYPROGESTERONE ACETATE
     Dosage: UNK (STRENGTH: 03-1.5 MG)/(QUANTITY FOR 90 DAYS: 180 TABLETS)

REACTIONS (3)
  - Product use issue [Unknown]
  - Memory impairment [Unknown]
  - Off label use [Unknown]
